FAERS Safety Report 4380536-2 (Version None)
Quarter: 2004Q2

REPORT INFORMATION
  Report Type: 
  Country: None (occurrence: None)
  Receive Date: 20040614
  Receipt Date: 20040315
  Transmission Date: 20050107
  Serious: Yes (Other)
  Sender: FDA-Public Use
  Company Number: M04-341-076

PATIENT
  Age: 62 Year
  Sex: Male

DRUGS (1)
  1. VELCADE [Suspect]
     Indication: MULTIPLE MYELOMA
     Dosage: 2.36 MG BIW : INTRAVENOUS BOLUS
     Route: 040
     Dates: start: 20040212, end: 20040311

REACTIONS (1)
  - NEUTROPENIA [None]
